FAERS Safety Report 20455776 (Version 2)
Quarter: 2022Q1

REPORT INFORMATION
  Report Type: Spontaneous
  Country: US (occurrence: US)
  Receive Date: 20220210
  Receipt Date: 20220214
  Transmission Date: 20220424
  Serious: No
  Sender: FDA-Public Use
  Company Number: US-NOVARTISTESTPH-NVSC2022US029380

PATIENT
  Sex: Female

DRUGS (2)
  1. VOLTAREN [Suspect]
     Active Substance: DICLOFENAC SODIUM
     Indication: Osteoarthritis
     Dosage: UNK
     Route: 065
  2. VOLTAREN [Suspect]
     Active Substance: DICLOFENAC SODIUM
     Indication: Bursitis

REACTIONS (2)
  - Product use in unapproved indication [Unknown]
  - Drug effective for unapproved indication [Unknown]
